FAERS Safety Report 8377899-X (Version None)
Quarter: 2012Q2

REPORT INFORMATION
  Report Type: 
  Country: None (occurrence: None)
  Receive Date: 20120522
  Receipt Date: 20120509
  Transmission Date: 20120825
  Serious: No
  Sender: FDA-Public Use
  Company Number: US-ASTRAZENECA-2012SE29886

PATIENT
  Age: 51 Year
  Sex: Female
  Weight: 79.8 kg

DRUGS (4)
  1. DILANTIN [Concomitant]
     Indication: CONVULSION
  2. PRILOSEC [Suspect]
     Indication: GASTROOESOPHAGEAL REFLUX DISEASE
     Route: 048
  3. KEPPRA [Concomitant]
     Indication: CONVULSION
  4. NEXIUM [Suspect]
     Indication: GASTROOESOPHAGEAL REFLUX DISEASE
     Route: 048

REACTIONS (7)
  - THROAT IRRITATION [None]
  - DYSPHAGIA [None]
  - DRUG INEFFECTIVE [None]
  - INTENTIONAL DRUG MISUSE [None]
  - OESOPHAGEAL PAIN [None]
  - ABDOMINAL PAIN UPPER [None]
  - VOMITING [None]
